FAERS Safety Report 8607251 (Version 3)
Quarter: 2013Q4

REPORT INFORMATION
  Report Type: Spontaneous
  Country: US (occurrence: US)
  Receive Date: 20120611
  Receipt Date: 20131018
  Transmission Date: 20140711
  Serious: Yes (Death, Hospitalization, Other)
  Sender: FDA-Public Use
  Company Number: US-ASTRAZENECA-2012SE34643

PATIENT
  Age: 59 Year
  Sex: Female
  Weight: 61.7 kg

DRUGS (15)
  1. NEXIUM [Suspect]
     Indication: GASTROOESOPHAGEAL REFLUX DISEASE
     Route: 048
     Dates: start: 2002, end: 2012
  2. NEXIUM [Suspect]
     Indication: GASTROOESOPHAGEAL REFLUX DISEASE
     Route: 048
     Dates: start: 20100331
  3. PROTONIX [Concomitant]
  4. TUMS [Concomitant]
  5. ADVAIR [Concomitant]
     Indication: ASTHMA
  6. PROAIR [Concomitant]
     Indication: ASTHMA
  7. IMIPRAMINE [Concomitant]
     Indication: PANIC DISORDER
  8. LOVASTATIN [Concomitant]
     Indication: BLOOD CHOLESTEROL ABNORMAL
  9. FAMOTIDINE [Concomitant]
     Indication: GASTROOESOPHAGEAL REFLUX DISEASE
  10. MULTIVITAMIN [Concomitant]
  11. VITAMIN C [Concomitant]
  12. FISH OIL [Concomitant]
  13. VITAMIN E [Concomitant]
  14. MAGNESIUM [Concomitant]
  15. PREMARIN [Concomitant]

REACTIONS (27)
  - Death [Fatal]
  - Osteopenia [Unknown]
  - Arthropathy [Unknown]
  - Condition aggravated [Unknown]
  - Gastric disorder [Unknown]
  - Bunion [Unknown]
  - Foot fracture [Unknown]
  - Nephrolithiasis [Unknown]
  - Osteoporosis [Unknown]
  - Multiple fractures [Unknown]
  - Osteoarthritis [Unknown]
  - Impaired healing [Unknown]
  - Migraine [Unknown]
  - Restless legs syndrome [Unknown]
  - Pain in extremity [Unknown]
  - Arthritis [Unknown]
  - Calcium deficiency [Unknown]
  - Vitamin D deficiency [Unknown]
  - Back pain [Unknown]
  - Neck pain [Unknown]
  - Gastric ulcer [Unknown]
  - Rectal haemorrhage [Unknown]
  - Bone disorder [Unknown]
  - Oesophageal disorder [Unknown]
  - Gastritis [Unknown]
  - Arthralgia [Unknown]
  - Muscular weakness [Unknown]
